FAERS Safety Report 6284780-9 (Version None)
Quarter: 2009Q3

REPORT INFORMATION
  Report Type: 
  Country: None (occurrence: None)
  Receive Date: 20090727
  Receipt Date: 20090715
  Transmission Date: 20100115
  Serious: Yes (Hospitalization)
  Sender: FDA-Public Use
  Company Number: PHHO2009ZA08835

PATIENT
  Sex: Female
  Weight: 23.2 kg

DRUGS (3)
  1. ELIDEL ASM+CRE [Suspect]
     Indication: DERMATITIS ATOPIC
     Dosage: APPLIED TWICE DAILY
     Route: 061
     Dates: start: 20081018
  2. ADVANTAN [Concomitant]
  3. PROCURAN [Concomitant]

REACTIONS (16)
  - ASTHMA [None]
  - BACTERIAL INFECTION [None]
  - C-REACTIVE PROTEIN INCREASED [None]
  - CHEST DISCOMFORT [None]
  - DEHYDRATION [None]
  - LETHARGY [None]
  - OBSTRUCTIVE AIRWAYS DISORDER [None]
  - OXYGEN SATURATION ABNORMAL [None]
  - PALLOR [None]
  - PLATELET COUNT INCREASED [None]
  - PYREXIA [None]
  - TACHYCARDIA [None]
  - VIRAL INFECTION [None]
  - VOMITING [None]
  - WHEEZING [None]
  - WHITE BLOOD CELL COUNT INCREASED [None]
